FAERS Safety Report 9773004 (Version 2)
Quarter: 2014Q1

REPORT INFORMATION
  Report Type: Spontaneous
  Country: US (occurrence: US)
  Receive Date: 20131219
  Receipt Date: 20140303
  Transmission Date: 20141002
  Serious: Yes (Other)
  Sender: FDA-Public Use
  Company Number: US-GILEAD-2013-0090277

PATIENT
  Age: 65 Year
  Sex: Female
  Weight: 92.52 kg

DRUGS (5)
  1. LETAIRIS [Suspect]
     Indication: PULMONARY ARTERIAL HYPERTENSION
     Dosage: 5 MG, QD
     Route: 048
     Dates: start: 20131003
  2. ADCIRCA [Concomitant]
  3. LASIX                              /00032601/ [Concomitant]
  4. NORVASC [Concomitant]
  5. AMBIEN [Concomitant]

REACTIONS (2)
  - Renal failure [Unknown]
  - Arthralgia [Unknown]
